FAERS Safety Report 9033535 (Version 1)
Quarter: 2013Q1

REPORT INFORMATION
  Report Type: Spontaneous
  Country: DE (occurrence: DE)
  Receive Date: 20130128
  Receipt Date: 20130128
  Transmission Date: 20140127
  Serious: Yes (Other)
  Sender: FDA-Public Use
  Company Number: DE-ASTRAZENECA-2013SE05006

PATIENT
  Age: 2 Month
  Sex: Female

DRUGS (2)
  1. PALIVIZUMAB [Suspect]
     Indication: ANTIVIRAL PROPHYLAXIS
     Route: 030
     Dates: start: 20121219, end: 20121219
  2. PALIVIZUMAB [Suspect]
     Indication: ANTIVIRAL PROPHYLAXIS
     Route: 030
     Dates: start: 20130116, end: 20130116

REACTIONS (1)
  - Hernia [Unknown]
